FAERS Safety Report 7630413-6 (Version None)
Quarter: 2011Q3

REPORT INFORMATION
  Report Type: 
  Country: None (occurrence: None)
  Receive Date: 20110722
  Receipt Date: 20110713
  Transmission Date: 20111222
  Serious: Yes (Hospitalization, Other)
  Sender: FDA-Public Use
  Company Number: FR-GLAXOSMITHKLINE-B0316189A

PATIENT
  Age: 91 Year
  Sex: Female

DRUGS (10)
  1. ASPEGIC 250 [Concomitant]
     Route: 048
  2. LASIX [Suspect]
     Route: 048
  3. LACTULOSE [Concomitant]
     Route: 048
  4. PAROXETINE HCL [Suspect]
     Indication: DEPRESSION
     Route: 048
     Dates: start: 20000916, end: 20030927
  5. DIGOXIN [Concomitant]
     Route: 048
  6. NITRODERM [Concomitant]
     Route: 062
  7. LEVOTHYROXINE SODIUM [Concomitant]
     Route: 048
  8. HALDOL [Concomitant]
     Dosage: 5DROP PER DAY
     Route: 048
  9. ACETAMINOPHEN W/ PROPOXYPHENE HCL [Concomitant]
     Route: 048
  10. LORAZEPAM [Concomitant]
     Route: 048

REACTIONS (4)
  - CONVULSION [None]
  - FALL [None]
  - INAPPROPRIATE ANTIDIURETIC HORMONE SECRETION [None]
  - HAEMATOMA [None]
